FAERS Safety Report 9491960 (Version 1)
Quarter: 2013Q3

REPORT INFORMATION
  Report Type: Spontaneous
  Country: US (occurrence: US)
  Receive Date: 20130830
  Receipt Date: 20130830
  Transmission Date: 20140515
  Serious: Yes (Life-Threatening, Hospitalization)
  Sender: FDA-Public Use
  Company Number: US-009507513-1308USA011235

PATIENT
  Age: 65 Year
  Sex: Female

DRUGS (15)
  1. PRINIVIL [Suspect]
     Indication: HYPERTENSION
     Dosage: 40 MG, QD
     Route: 048
  2. ASPIRIN [Suspect]
     Dosage: 81 MG, QD
     Route: 048
  3. ASPIRIN [Suspect]
     Dosage: 325 MG, QD
     Route: 048
  4. AMLODIPINE [Concomitant]
     Dosage: 5 MG, QD
  5. METOPROLOL TARTRATE [Concomitant]
     Dosage: 12.5 MG, BID
  6. HYDROCHLOROTHIAZIDE [Concomitant]
     Dosage: 25 MG, QD
  7. SIMVASTATIN TABLETS, USP [Concomitant]
     Dosage: 40 MG, QD
  8. GLIPIZIDE [Concomitant]
     Dosage: 5 MG, QAM BEFORE BREAKFAST
  9. BUPROPION HYDROCHLORIDE [Concomitant]
     Dosage: 150 MG, QD
  10. ALPRAZOLAM [Concomitant]
     Dosage: .25 MG, BID
  11. METHOCARBAMOL [Concomitant]
     Dosage: 500 MG, QD
  12. CALCIUM (UNSPECIFIED) [Concomitant]
     Dosage: UNK UNK, QD
  13. VITAMIN D (UNSPECIFIED) [Concomitant]
     Dosage: UNK UNK, QD
  14. IBUPROFEN [Concomitant]
     Dosage: 600 MG THREE TIMES A DAY, PRN
  15. ALBUTEROL [Concomitant]
     Dosage: 2 PUFFS EVERY 6 HOURS, PRN

REACTIONS (2)
  - Angioedema [Recovered/Resolved]
  - Angioedema [Recovered/Resolved]
